FAERS Safety Report 5345755-7 (Version None)
Quarter: 2007Q2

REPORT INFORMATION
  Report Type: 
  Country: None (occurrence: None)
  Receive Date: 20070426
  Receipt Date: 20070124
  Transmission Date: 20071010
  Serious: Yes (Other)
  Sender: FDA-Public Use
  Company Number: US-JNJFOC-20070107240

PATIENT
  Sex: Female

DRUGS (1)
  1. TRAMADOL (TRAMADOL HYDROCHLORIDE) TABLETS [Suspect]
     Indication: DRUG USE FOR UNKNOWN INDICATION
     Dosage: 50 MG, 8 IN 1 DAY, ORAL
     Route: 048

REACTIONS (2)
  - CONVULSION [None]
  - OVERDOSE [None]
